FAERS Safety Report 17908717 (Version 1)
Quarter: 2020Q2

REPORT INFORMATION
  Report Type: Spontaneous
  Country: US (occurrence: US)
  Receive Date: 20200617
  Receipt Date: 20200617
  Transmission Date: 20200714
  Serious: No
  Sender: FDA-Public Use
  Company Number: US-TEVA-2020-US-1787762

PATIENT
  Sex: Female

DRUGS (2)
  1. ALPRAZOLAM TEVA [Suspect]
     Active Substance: ALPRAZOLAM
     Indication: ANXIETY
     Dosage: START DATE: BEEN ON ALPRAZOLAM FOR 10 YEARS
     Route: 065
  2. ALPRAZOLAM TEVA [Suspect]
     Active Substance: ALPRAZOLAM
     Route: 065
     Dates: start: 20200605

REACTIONS (2)
  - Drug ineffective [Unknown]
  - Product quality issue [Unknown]

NARRATIVE: CASE EVENT DATE: 20200605
